FAERS Safety Report 25378824 (Version 1)
Quarter: 2025Q2

REPORT INFORMATION
  Report Type: Spontaneous
  Country: BE (occurrence: BE)
  Receive Date: 20250530
  Receipt Date: 20250530
  Transmission Date: 20250716
  Serious: Yes (Hospitalization, Other)
  Sender: GENMAB
  Company Number: None

PATIENT
  Age: 68 Year
  Sex: Female
  Weight: 90 kg

DRUGS (26)
  1. EPCORITAMAB [Suspect]
     Active Substance: EPCORITAMAB
     Indication: Diffuse large B-cell lymphoma stage III
     Dosage: 48 MILLIGRAM, WEEKLY
     Route: 058
     Dates: start: 20210622, end: 20210720
  2. EPCORITAMAB [Suspect]
     Active Substance: EPCORITAMAB
     Route: 058
     Dates: start: 20210615, end: 20210615
  3. EPCORITAMAB [Suspect]
     Active Substance: EPCORITAMAB
     Route: 058
     Dates: start: 20210608, end: 20210608
  4. PREDNISONE ACETATE [Suspect]
     Active Substance: PREDNISONE ACETATE
     Indication: Diffuse large B-cell lymphoma stage III
     Dosage: 80 MILLIGRAM, QD
     Route: 048
     Dates: start: 20210608, end: 20210612
  5. PREDNISONE ACETATE [Suspect]
     Active Substance: PREDNISONE ACETATE
     Dosage: 80 MILLIGRAM, QD
     Route: 048
     Dates: start: 20210629, end: 20210703
  6. PREDNISONE ACETATE [Suspect]
     Active Substance: PREDNISONE ACETATE
     Dosage: 80 MILLIGRAM, QD
     Route: 048
     Dates: start: 20210720
  7. CYCLOPHOSPHAMIDE [Suspect]
     Active Substance: CYCLOPHOSPHAMIDE
     Indication: Diffuse large B-cell lymphoma stage III
     Dosage: 750 MILLIGRAM/SQ. METER, 1Q3W
     Route: 065
     Dates: start: 20210608
  8. DOXORUBICIN HYDROCHLORIDE [Suspect]
     Active Substance: DOXORUBICIN HYDROCHLORIDE
     Indication: Diffuse large B-cell lymphoma stage III
     Dosage: 50 MILLIGRAM/SQ. METER, 1Q3W
     Route: 042
     Dates: start: 20210608
  9. VINCRISTINE SULFATE [Suspect]
     Active Substance: VINCRISTINE SULFATE
     Indication: Diffuse large B-cell lymphoma stage III
     Route: 065
     Dates: start: 20210608
  10. RITUXIMAB [Suspect]
     Active Substance: RITUXIMAB
     Indication: Diffuse large B-cell lymphoma stage III
     Dosage: 375 MILLIGRAM/SQ. METER, 1Q3W
     Route: 042
     Dates: start: 20210607
  11. URSODIOL [Concomitant]
     Active Substance: URSODIOL
     Indication: Product used for unknown indication
     Route: 065
     Dates: start: 20150710
  12. OMEPRAZOLE [Concomitant]
     Active Substance: OMEPRAZOLE
     Indication: Product used for unknown indication
     Route: 065
     Dates: start: 20081002
  13. ATORVASTATIN [Concomitant]
     Active Substance: ATORVASTATIN
     Indication: Product used for unknown indication
     Route: 065
     Dates: start: 20201028
  14. PROMETHAZINE [PROMETHAZINE TEOCLATE] [Concomitant]
     Indication: Product used for unknown indication
     Route: 065
     Dates: start: 20210720, end: 20210803
  15. ACETAMINOPHEN [Concomitant]
     Active Substance: ACETAMINOPHEN
     Indication: Product used for unknown indication
     Route: 065
     Dates: start: 20210720, end: 20210803
  16. ACETAMINOPHEN [Concomitant]
     Active Substance: ACETAMINOPHEN
     Route: 065
     Dates: start: 20201028
  17. ZOVIRAX [Concomitant]
     Active Substance: ACYCLOVIR
     Indication: Product used for unknown indication
     Route: 065
     Dates: start: 20210528
  18. CITALOPRAM HYDROBROMIDE [Concomitant]
     Active Substance: CITALOPRAM HYDROBROMIDE
     Indication: Product used for unknown indication
     Route: 065
     Dates: start: 20150710
  19. ALLOPURINOL [Concomitant]
     Active Substance: ALLOPURINOL
     Indication: Product used for unknown indication
     Route: 065
     Dates: start: 20210528
  20. CARVEDILOL [Concomitant]
     Active Substance: CARVEDILOL
     Indication: Product used for unknown indication
     Route: 065
     Dates: start: 20150710
  21. TRAMADOL HYDROCHLORIDE [Concomitant]
     Active Substance: TRAMADOL HYDROCHLORIDE
     Indication: Product used for unknown indication
     Route: 065
     Dates: start: 202105
  22. MEBEVERINE EMBONATE [Concomitant]
     Active Substance: MEBEVERINE EMBONATE
     Indication: Product used for unknown indication
     Route: 065
     Dates: start: 20201028
  23. MIRTAZAPINE [Concomitant]
     Active Substance: MIRTAZAPINE
     Indication: Product used for unknown indication
     Route: 065
     Dates: start: 20201028
  24. FOSAMAX [Concomitant]
     Active Substance: ALENDRONATE SODIUM
     Indication: Product used for unknown indication
     Route: 065
     Dates: start: 20150921
  25. LORMETAZEPAM [Concomitant]
     Active Substance: LORMETAZEPAM
     Indication: Product used for unknown indication
     Route: 065
     Dates: start: 2002
  26. MOBIFLEX [TENOXICAM] [Concomitant]
     Indication: Product used for unknown indication
     Route: 065
     Dates: start: 20151202

REACTIONS (1)
  - Escherichia urinary tract infection [Recovered/Resolved]

NARRATIVE: CASE EVENT DATE: 20210724
